FAERS Safety Report 21271271 (Version 1)
Quarter: 2022Q3

REPORT INFORMATION
  Report Type: Spontaneous
  Country: US (occurrence: US)
  Receive Date: 20220830
  Receipt Date: 20220830
  Transmission Date: 20221027
  Serious: Yes (Other)
  Sender: FDA-Public Use
  Company Number: US-NOVARTISPH-NVSC2022US192075

PATIENT

DRUGS (1)
  1. CEFAZOLIN [Suspect]
     Active Substance: CEFAZOLIN
     Indication: Antibiotic therapy
     Dosage: UNK
     Route: 051

REACTIONS (1)
  - Hepatotoxicity [Unknown]
